FAERS Safety Report 12942218 (Version 6)
Quarter: 2018Q1

REPORT INFORMATION
  Report Type: Spontaneous
  Country: US (occurrence: US)
  Receive Date: 20161114
  Receipt Date: 20180323
  Transmission Date: 20180508
  Serious: No
  Sender: FDA-Public Use
  Company Number: US-ASTRAZENECA-2016SF12943

PATIENT
  Sex: Female
  Weight: 49 kg

DRUGS (2)
  1. TUDORZA PRESSAIR [Suspect]
     Active Substance: ACLIDINIUM BROMIDE
     Indication: CHRONIC OBSTRUCTIVE PULMONARY DISEASE
     Dosage: SOMETIMES TAKES THE MEDICATION ONCE A DAY INSTEAD OF TWICE
     Route: 055
  2. TUDORZA PRESSAIR [Suspect]
     Active Substance: ACLIDINIUM BROMIDE
     Indication: CHRONIC OBSTRUCTIVE PULMONARY DISEASE
     Dosage: ONE PUFF TWICE A DAY
     Route: 055
     Dates: start: 2012

REACTIONS (9)
  - Product physical issue [Unknown]
  - Underdose [Unknown]
  - Intentional product use issue [Unknown]
  - Dysgeusia [Unknown]
  - Panic reaction [Unknown]
  - Device malfunction [Unknown]
  - Anxiety [Unknown]
  - Intentional product misuse [Unknown]
  - Circumstance or information capable of leading to medication error [Unknown]
